FAERS Safety Report 6611458-1 (Version None)
Quarter: 2010Q1

REPORT INFORMATION
  Report Type: 
  Country: None (occurrence: None)
  Receive Date: 20100303
  Receipt Date: 20100219
  Transmission Date: 20100710
  Serious: Yes (Hospitalization)
  Sender: FDA-Public Use
  Company Number: US-ELI_LILLY_AND_COMPANY-US201002006133

PATIENT
  Age: 58 Year
  Sex: Male
  Weight: 70.748 kg

DRUGS (5)
  1. GEMCITABINE HCL [Suspect]
     Indication: TRANSITIONAL CELL CARCINOMA
     Dosage: 1000 MG/M2, OTHER
     Route: 042
     Dates: start: 20090428, end: 20090428
  2. CETUXIMAB [Suspect]
     Indication: TRANSITIONAL CELL CARCINOMA
     Dosage: 500 MG/M2, OTHER
     Route: 042
     Dates: start: 20090428, end: 20090428
  3. CISPLATIN [Suspect]
     Indication: TRANSITIONAL CELL CARCINOMA
     Dosage: 70 MG/M2, OTHER
     Route: 042
     Dates: start: 20090428, end: 20090428
  4. ANALGESICS [Concomitant]
     Indication: PAIN
  5. ANTIEMETICS AND ANTINAUSEANTS [Concomitant]
     Indication: NAUSEA

REACTIONS (5)
  - DECREASED APPETITE [None]
  - DYSPHAGIA [None]
  - NAUSEA [None]
  - PAIN [None]
  - VOMITING [None]
